FAERS Safety Report 24247562 (Version 1)
Quarter: 2024Q3

REPORT INFORMATION
  Report Type: Spontaneous
  Country: US (occurrence: None)
  Receive Date: 20240826
  Receipt Date: 20240826
  Transmission Date: 20241016
  Serious: Yes (Disabling, Other)
  Sender: ASTRAZENECA
  Company Number: 2024A188373

PATIENT
  Age: 23174 Day
  Sex: Female
  Weight: 80.7 kg

DRUGS (1)
  1. IMFINZI [Suspect]
     Active Substance: DURVALUMAB
     Indication: Ill-defined disorder
     Route: 042
     Dates: start: 20230801, end: 20230901

REACTIONS (5)
  - Hypertransaminasaemia [Not Recovered/Not Resolved]
  - Renal failure [Unknown]
  - Asthenia [Unknown]
  - Hyperglycaemia [Unknown]
  - Contusion [Unknown]

NARRATIVE: CASE EVENT DATE: 20230901
